FAERS Safety Report 10163548 (Version 1)
Quarter: 2014Q2

REPORT INFORMATION
  Report Type: Spontaneous
  Country: KR (occurrence: KR)
  Receive Date: 20140509
  Receipt Date: 20140509
  Transmission Date: 20141212
  Serious: Yes (Other)
  Sender: FDA-Public Use
  Company Number: KR-PERRIGO-14KR004763

PATIENT
  Age: 6 Year
  Sex: Female

DRUGS (1)
  1. ACETAMINOPHEN 650MG ER 544 [Suspect]
     Indication: PRODUCT USED FOR UNKNOWN INDICATION
     Dosage: UNKNOWN, UNKNOWN
     Route: 065

REACTIONS (2)
  - Vanishing bile duct syndrome [Recovered/Resolved]
  - Erythema multiforme [Recovered/Resolved]
